FAERS Safety Report 23299737 (Version 3)
Quarter: 2024Q3

REPORT INFORMATION
  Report Type: Report from Study
  Country: CA (occurrence: CA)
  Receive Date: 20231215
  Receipt Date: 20240930
  Transmission Date: 20241017
  Serious: Yes (Hospitalization)
  Sender: NOVARTIS
  Company Number: CA-002147023-NVSC2023CA262024

PATIENT
  Age: 3 Year
  Sex: Female

DRUGS (1)
  1. ILARIS [Suspect]
     Active Substance: CANAKINUMAB
     Indication: Still^s disease
     Dosage: UNK UNK, Q4W (VIAL, DOSE: 60 UNIT NOT REPORTED)
     Route: 058
     Dates: start: 20231106

REACTIONS (2)
  - Influenza [Unknown]
  - Drug ineffective [Unknown]
